FAERS Safety Report 20109125 (Version 3)
Quarter: 2021Q4

REPORT INFORMATION
  Report Type: Spontaneous
  Country: BE (occurrence: BE)
  Receive Date: 20211124
  Receipt Date: 20211220
  Transmission Date: 20220304
  Serious: No
  Sender: FDA-Public Use
  Company Number: BE-ORGANON-O2111BEL002503

PATIENT
  Sex: Female

DRUGS (3)
  1. ETONOGESTREL [Suspect]
     Active Substance: ETONOGESTREL
     Dosage: 1 DOSAGE FORM
     Route: 059
     Dates: start: 20210805, end: 20210823
  2. LEVOTHYROXINE SODIUM [Concomitant]
     Active Substance: LEVOTHYROXINE SODIUM
     Dosage: UNK
  3. PAROXETINE [Concomitant]
     Active Substance: PAROXETINE
     Dosage: UNK

REACTIONS (3)
  - Complication of device insertion [Recovered/Resolved]
  - Implant site inflammation [Unknown]
  - Maternal exposure during pregnancy [Unknown]

NARRATIVE: CASE EVENT DATE: 20210805
